FAERS Safety Report 24685070 (Version 1)
Quarter: 2024Q4

REPORT INFORMATION
  Report Type: Spontaneous
  Country: ZA (occurrence: ZA)
  Receive Date: 20241202
  Receipt Date: 20241202
  Transmission Date: 20250114
  Serious: Yes (Hospitalization)
  Sender: BAYER HEALTHCARE PHARMACEUTICALS INC.
  Company Number: ZA-BAYER-2024A116268

PATIENT
  Age: 16 Year
  Sex: Female

DRUGS (18)
  1. DIENOGEST\ESTRADIOL VALERATE [Suspect]
     Active Substance: DIENOGEST\ESTRADIOL VALERATE
     Indication: Contraception
     Dosage: 1 DF, QD
     Route: 048
  2. PICOPREP [Concomitant]
     Active Substance: ANHYDROUS CITRIC ACID\MAGNESIUM OXIDE\SODIUM PICOSULFATE
     Dosage: ONE SACHET  DISSOLVED  IN WATER  WEEKLY
     Route: 048
  3. FOSFOMYCIN TROMETHAMINE [Concomitant]
     Active Substance: FOSFOMYCIN TROMETHAMINE
     Dosage: 3 G DRINK  ONE SACHET  DISSOLVED  IN WATER  AT ONCE
     Route: 048
  4. FOSFOMYCIN TROMETHAMINE [Concomitant]
     Active Substance: FOSFOMYCIN TROMETHAMINE
     Dosage: UNK
     Route: 048
     Dates: start: 20241122
  5. FOLIC ACID [Concomitant]
     Active Substance: FOLIC ACID
     Indication: Coronary artery disease
     Dosage: 5 MG, QD
     Route: 048
  6. Unitro [Concomitant]
     Dosage: EVERY  SECOND AT  NIGHT
     Route: 048
  7. CITALOPRAM HYDROBROMIDE [Concomitant]
     Active Substance: CITALOPRAM HYDROBROMIDE
     Indication: Psychiatric care
     Dosage: 20 MG, QD
     Route: 048
  8. Utroves [Concomitant]
     Indication: Hypertonic bladder
     Dosage: 10 MG, QD
     Route: 048
  9. Utroves [Concomitant]
     Indication: Hypertonic bladder
     Dosage: 5 MG, QD
     Route: 048
  10. Mirabegrona [Concomitant]
     Dosage: 50 MG, QD
  11. SULFAMETHOXAZOLE\TRIMETHOPRIM [Concomitant]
     Active Substance: SULFAMETHOXAZOLE\TRIMETHOPRIM
     Indication: Acne
     Dosage: 480 MG, BID
  12. SULFAMETHOXAZOLE\TRIMETHOPRIM [Concomitant]
     Active Substance: SULFAMETHOXAZOLE\TRIMETHOPRIM
     Indication: Acne
     Dosage: 1 DF, QD
     Route: 048
  13. REUTERINA DAILY [Concomitant]
     Dosage: 1 DF, QD
     Route: 048
  14. MACRODANTIN [Concomitant]
     Active Substance: NITROFURANTOIN
     Indication: Urinary tract infection
     Dosage: 50 MG EVERY  SECOND AT  NIGHT
  15. FLUCONAZOLE [Concomitant]
     Active Substance: FLUCONAZOLE
     Dosage: 150 MG, QD
     Route: 048
  16. MIRABEGRON [Concomitant]
     Active Substance: MIRABEGRON
     Indication: Urinary incontinence
     Dosage: 50 MG, QD
     Route: 048
  17. CISPLATIN [Concomitant]
     Active Substance: CISPLATIN
     Dosage: 50 MG, QD
     Route: 048
  18. CEFASYN [Concomitant]
     Dosage: 500 MG, BID
     Route: 048

REACTIONS (1)
  - Female reproductive tract disorder [None]
